FAERS Safety Report 22091218 (Version 1)
Quarter: 2023Q1

REPORT INFORMATION
  Report Type: Other
  Country: US (occurrence: US)
  Receive Date: 20230314
  Receipt Date: 20230314
  Transmission Date: 20230417
  Serious: No
  Sender: FDA-Public Use
  Company Number: US-GBT-020594

PATIENT
  Age: 25 Year
  Sex: Male

DRUGS (2)
  1. OXBRYTA [Suspect]
     Active Substance: VOXELOTOR
     Indication: Sickle cell disease
     Dosage: 500 MG
     Dates: start: 2020
  2. ENDARI [Concomitant]
     Active Substance: GLUTAMINE
     Indication: Sickle cell disease

REACTIONS (2)
  - Fatigue [Unknown]
  - Diarrhoea [Unknown]
